FAERS Safety Report 9208493 (Version 1)
Quarter: 2013Q2

REPORT INFORMATION
  Report Type: Spontaneous
  Country: US (occurrence: US)
  Receive Date: 20130404
  Receipt Date: 20130404
  Transmission Date: 20140414
  Serious: No
  Sender: FDA-Public Use
  Company Number: US-BIOGENIDEC-2013BI026858

PATIENT
  Age: 41 Year
  Sex: Female

DRUGS (3)
  1. AVONEX [Suspect]
     Indication: MULTIPLE SCLEROSIS
     Route: 030
     Dates: start: 20130126
  2. NEURONTIN [Concomitant]
     Indication: NEURALGIA
  3. VITAMIN D [Concomitant]
     Indication: MULTIPLE SCLEROSIS

REACTIONS (3)
  - Drug dose omission [Recovered/Resolved]
  - Anxiety [Recovered/Resolved]
  - Hypoaesthesia [Not Recovered/Not Resolved]
